FAERS Safety Report 13333814 (Version 1)
Quarter: 2017Q1

REPORT INFORMATION
  Report Type: Spontaneous
  Country: JP (occurrence: JP)
  Receive Date: 20170314
  Receipt Date: 20170314
  Transmission Date: 20170428
  Serious: Yes (Hospitalization, Other)
  Sender: FDA-Public Use
  Company Number: JP-ASTRAZENECA-2017SE25616

PATIENT
  Age: 80 Year
  Sex: Female

DRUGS (3)
  1. CRESTOR [Suspect]
     Active Substance: ROSUVASTATIN CALCIUM
     Route: 048
     Dates: start: 2012, end: 2017
  2. MUCOSTA [Concomitant]
     Active Substance: REBAMIPIDE
     Dosage: DOSE UNKNOWN
     Route: 065
  3. BAYASPIRIN [Concomitant]
     Active Substance: ASPIRIN
     Dosage: DOSE UNKNOWN
     Route: 065

REACTIONS (3)
  - Haematemesis [Unknown]
  - Respiratory disorder [Unknown]
  - Aplastic anaemia [Unknown]

NARRATIVE: CASE EVENT DATE: 20170213
